FAERS Safety Report 9934740 (Version 2)
Quarter: 2014Q1

REPORT INFORMATION
  Report Type: Spontaneous
  Country: US (occurrence: US)
  Receive Date: 20140228
  Receipt Date: 20140228
  Transmission Date: 20141002
  Serious: Yes (Hospitalization)
  Sender: FDA-Public Use
  Company Number: US-GLAXOSMITHKLINE-A0888183A

PATIENT
  Age: 45 Year
  Sex: Male
  Weight: 124.5 kg

DRUGS (12)
  1. AVANDIA [Suspect]
     Indication: DIABETES MELLITUS
     Route: 048
     Dates: start: 200006, end: 20071206
  2. LIPITOR [Concomitant]
  3. SYNTHROID [Concomitant]
  4. LOPID [Concomitant]
  5. ASPIRIN [Concomitant]
  6. LOPRESSOR [Concomitant]
  7. INSULIN [Concomitant]
  8. ALTACE [Concomitant]
  9. PLAVIX [Concomitant]
  10. LANTUS [Concomitant]
  11. COREG [Concomitant]
  12. FENOFIBRATE [Concomitant]

REACTIONS (3)
  - Myocardial infarction [Not Recovered/Not Resolved]
  - Cardiac disorder [Unknown]
  - Coronary artery disease [Unknown]
